FAERS Safety Report 4020391 (Version 3)
Quarter: 2015Q4

REPORT INFORMATION
  Report Type: Spontaneous
  Country: JP (occurrence: JP)
  Receive Date: 20031031
  Receipt Date: 20151027
  Transmission Date: 20160305
  Serious: Yes (Other)
  Sender: FDA-Public Use
  Company Number: PHBS2003JP11538

PATIENT
  Age: 40 Year
  Sex: Female

DRUGS (3)
  1. VOLTAREN [Suspect]
     Active Substance: DICLOFENAC SODIUM
     Indication: ANALGESIC THERAPY
  2. VOLTAREN [Suspect]
     Active Substance: DICLOFENAC SODIUM
     Indication: CALCULUS URINARY
     Dosage: 100 MG/DAY
     Route: 054
     Dates: start: 20031018, end: 20031018
  3. THIATON [Concomitant]
     Active Substance: TIQUIZIUM BROMIDE
     Route: 048
     Dates: start: 20031018, end: 20031018

REACTIONS (1)
  - Eczema [Recovered/Resolved]

NARRATIVE: CASE EVENT DATE: 20031018
